FAERS Safety Report 10048240 (Version 1)
Quarter: 2014Q1

REPORT INFORMATION
  Report Type: Spontaneous
  Country: US (occurrence: US)
  Receive Date: 20140331
  Receipt Date: 20140331
  Transmission Date: 20141002
  Serious: Yes (Other)
  Sender: FDA-Public Use
  Company Number: US-PFIZER INC-2014090203

PATIENT
  Sex: Male

DRUGS (1)
  1. LOPID [Suspect]
     Dosage: UNK

REACTIONS (12)
  - Blood cholesterol increased [Unknown]
  - Chills [Unknown]
  - Pyrexia [Unknown]
  - Oropharyngeal pain [Unknown]
  - Somnolence [Unknown]
  - Dizziness [Unknown]
  - Diarrhoea [Unknown]
  - Paraesthesia [Unknown]
  - Burning sensation [Unknown]
  - Arthralgia [Unknown]
  - Myalgia [Unknown]
  - Abdominal pain upper [Unknown]
